FAERS Safety Report 8543230 (Version 4)
Quarter: 2013Q2

REPORT INFORMATION
  Report Type: Spontaneous
  Country: US (occurrence: US)
  Receive Date: 20120502
  Receipt Date: 20130612
  Transmission Date: 20140414
  Serious: Yes (Hospitalization, Other)
  Sender: FDA-Public Use
  Company Number: US-ELI_LILLY_AND_COMPANY-US201204008142

PATIENT
  Age: 63 Year
  Sex: Female

DRUGS (17)
  1. FORTEO [Suspect]
     Indication: OSTEOPOROSIS
     Dosage: 20 UG, QD
     Dates: start: 201112
  2. FORTEO [Suspect]
     Dosage: 20 UG, 2/W
  3. FORTEO [Suspect]
     Dosage: 20 UG, 2/W
  4. FORTEO [Suspect]
     Dosage: UNK, QD
  5. CORTISONE [Concomitant]
  6. METHOTREXATE [Concomitant]
  7. HUMIRA [Concomitant]
  8. LASIX [Concomitant]
  9. THIAMINE [Concomitant]
  10. OXYCONTIN [Concomitant]
  11. HYDROCODONE [Concomitant]
  12. GLUCOPHAGE [Concomitant]
  13. FOLIC ACID [Concomitant]
  14. VITAMIN D NOS [Concomitant]
  15. WARFARIN [Concomitant]
  16. AMITRIPTYLINE [Concomitant]
  17. KLONOPIN [Concomitant]

REACTIONS (14)
  - Thrombosis [Recovering/Resolving]
  - Loss of consciousness [Recovered/Resolved]
  - Spinal fracture [Unknown]
  - Pneumonia [Unknown]
  - Arthritis [Unknown]
  - Hypotension [Unknown]
  - Heart rate increased [Not Recovered/Not Resolved]
  - Inappropriate schedule of drug administration [Unknown]
  - Stress [Unknown]
  - Back pain [Not Recovered/Not Resolved]
  - Musculoskeletal discomfort [Not Recovered/Not Resolved]
  - Arthralgia [Not Recovered/Not Resolved]
  - Spinal fracture [Unknown]
  - Back pain [Not Recovered/Not Resolved]
